FAERS Safety Report 4313670-3 (Version None)
Quarter: 2004Q1

REPORT INFORMATION
  Report Type: 
  Country: None (occurrence: None)
  Receive Date: 20040308
  Receipt Date: 20040205
  Transmission Date: 20041129
  Serious: Yes (Hospitalization)
  Sender: FDA-Public Use
  Company Number: PHBS2004JP01844

PATIENT
  Age: 60 Year
  Sex: Female

DRUGS (6)
  1. GLEEVEC [Suspect]
     Indication: CHRONIC MYELOID LEUKAEMIA
     Dosage: 400 MG/D
     Route: 048
     Dates: start: 20011226, end: 20040128
  2. GLEEVEC [Suspect]
     Dosage: 200 MG/D
     Route: 048
     Dates: start: 20040207
  3. SELBEX [Concomitant]
     Dosage: 150 G/D
     Route: 048
  4. HERBESSER ^DELTA^ [Concomitant]
     Indication: ANGINA PECTORIS
     Dosage: 90 MG/D
     Route: 048
  5. NIVADIL [Concomitant]
     Indication: HYPERTENSION
     Dosage: 4 MG/D
     Route: 048
  6. LASIX [Concomitant]
     Dosage: 20 MG/D
     Route: 048

REACTIONS (10)
  - ASTHMA [None]
  - C-REACTIVE PROTEIN INCREASED [None]
  - NAUSEA [None]
  - OBLITERATIVE BRONCHIOLITIS [None]
  - PLATELET COUNT INCREASED [None]
  - PNEUMONIA [None]
  - PRODUCTIVE COUGH [None]
  - PYREXIA [None]
  - WHEEZING [None]
  - WHITE BLOOD CELL COUNT INCREASED [None]
